FAERS Safety Report 25980096 (Version 1)
Quarter: 2025Q4

REPORT INFORMATION
  Report Type: Spontaneous
  Country: US (occurrence: None)
  Receive Date: 20251030
  Receipt Date: 20251030
  Transmission Date: 20260117
  Serious: No
  Sender: FDA-CTU
  Company Number: None

PATIENT
  Sex: Female
  Weight: 74.7 kg

DRUGS (4)
  1. SYNTHROID [Suspect]
     Active Substance: LEVOTHYROXINE SODIUM
  2. LEVOTHYROXINE [Concomitant]
     Active Substance: LEVOTHYROXINE
     Dates: start: 20210513, end: 20220712
  3. ARMOUR THYROID [Concomitant]
     Active Substance: THYROID, PORCINE
     Dates: start: 20220712, end: 20230708
  4. NP THYROID [Concomitant]
     Active Substance: LEVOTHYROXINE\LIOTHYRONINE
     Dates: start: 20241001, end: 20250612

REACTIONS (2)
  - Reaction to excipient [None]
  - Hypersensitivity [None]
